FAERS Safety Report 9487219 (Version 1)
Quarter: 2013Q3

REPORT INFORMATION
  Report Type: Spontaneous
  Country: US (occurrence: US)
  Receive Date: 20130829
  Receipt Date: 20130829
  Transmission Date: 20140515
  Serious: Yes (Hospitalization)
  Sender: FDA-Public Use
  Company Number: US-AMGEN-KDL141214

PATIENT
  Age: 72 Year
  Sex: Male

DRUGS (8)
  1. ENBREL [Suspect]
     Indication: PSORIASIS
     Dosage: 25 MG, 2 TIMES/WK
     Route: 058
     Dates: start: 20020101
  2. ENBREL [Suspect]
     Indication: PSORIATIC ARTHROPATHY
  3. DIGOXIN [Concomitant]
     Dosage: UNK UNK, UNK
  4. FUROSEMIDE [Concomitant]
     Dosage: UNK UNK, UNK
  5. FLUOXETINE HYDROCHLORIDE [Concomitant]
     Dosage: UNK UNK, UNK
  6. GLIMEPIRIDE [Concomitant]
     Dosage: UNK UNK, UNK
  7. QUININE [Concomitant]
     Dosage: UNK UNK, UNK
  8. TAMSULOSIN HCL [Concomitant]
     Dosage: UNK UNK, UNK

REACTIONS (4)
  - Gastric ulcer perforation [Unknown]
  - Abdominal infection [Unknown]
  - Sepsis [Unknown]
  - Weight decreased [Unknown]
